FAERS Safety Report 7087930-X (Version None)
Quarter: 2010Q4

REPORT INFORMATION
  Report Type: 
  Country: None (occurrence: None)
  Receive Date: 20101108
  Receipt Date: 20101026
  Transmission Date: 20110411
  Serious: Yes (Other)
  Sender: FDA-Public Use
  Company Number: US-US-EMD SERONO, INC.-231426J09USA

PATIENT
  Sex: Female
  Weight: 91 kg

DRUGS (6)
  1. REBIF [Suspect]
     Indication: MULTIPLE SCLEROSIS
     Route: 065
     Dates: end: 20070701
  2. REBIF [Suspect]
     Route: 058
     Dates: start: 20090513
  3. LEVOTHYROXINE [Concomitant]
     Indication: THYROID DISORDER
     Route: 065
  4. DETROL [Concomitant]
     Indication: URINARY INCONTINENCE
     Route: 065
  5. UNSPECIFIED MEDICAITON [Concomitant]
     Indication: HYPERTENSION
     Route: 065
  6. LISINOPRIL [Concomitant]
     Indication: HYPERTENSION
     Route: 065

REACTIONS (4)
  - AORTIC VALVE INCOMPETENCE [None]
  - BLOOD PRESSURE INCREASED [None]
  - CARDIOMYOPATHY [None]
  - GALLBLADDER DISORDER [None]
